FAERS Safety Report 7603553-5 (Version None)
Quarter: 2011Q3

REPORT INFORMATION
  Report Type: 
  Country: None (occurrence: None)
  Receive Date: 20110711
  Receipt Date: 20110711
  Transmission Date: 20111222
  Serious: Yes (Hospitalization)
  Sender: FDA-Public Use
  Company Number: None

PATIENT
  Sex: Female
  Weight: 85 kg

DRUGS (9)
  1. UNKNOWN [Concomitant]
  2. DOXORUBICIN HYDROCHLORIDE [Suspect]
     Dosage: 76 MG
  3. UNKNOWN [Concomitant]
  4. RITUXIMAB (MOAB C2B8 ANTI CD20, CHIMERIC) [Suspect]
     Dosage: 716 MG
  5. UNKNOWN [Concomitant]
  6. PREDNISONE [Suspect]
     Dosage: 1150 MG
  7. CYCLOPHOSPHAMIDE [Suspect]
     Dosage: 1433 MG
  8. ETOPOSIDE [Suspect]
     Dosage: 384 MG
  9. VINCRISTINE SULFATE [Suspect]
     Dosage: 3.04 MG

REACTIONS (6)
  - NAUSEA [None]
  - BACK PAIN [None]
  - HYPOTENSION [None]
  - HYPOCALCAEMIA [None]
  - NEUTROPENIA [None]
  - VOMITING [None]
